FAERS Safety Report 16890887 (Version 1)
Quarter: 2019Q4

REPORT INFORMATION
  Report Type: Spontaneous
  Country: US (occurrence: US)
  Receive Date: 20191007
  Receipt Date: 20191007
  Transmission Date: 20200122
  Serious: No
  Sender: FDA-Public Use
  Company Number: US-PFIZER INC-2019428325

PATIENT
  Sex: Female

DRUGS (2)
  1. VISTARIL [Suspect]
     Active Substance: HYDROXYZINE PAMOATE
     Dosage: 50 MG, 1X/DAY (50 MG ONCE PER NIGHT)
  2. SILENOR [Suspect]
     Active Substance: DOXEPIN HYDROCHLORIDE
     Dosage: 3 MG, 1X/DAY(3 MG ONCE PER NIGHT)

REACTIONS (6)
  - Somnolence [Unknown]
  - Headache [Unknown]
  - Agitation [Unknown]
  - Drug ineffective [Unknown]
  - Muscular weakness [Unknown]
  - Fatigue [Unknown]
